FAERS Safety Report 5551550-6 (Version None)
Quarter: 2007Q4

REPORT INFORMATION
  Report Type: 
  Country: None (occurrence: None)
  Receive Date: 20071212
  Receipt Date: 20071203
  Transmission Date: 20080405
  Serious: Yes (Hospitalization)
  Sender: FDA-Public Use
  Company Number: FR-SANOFI-SYNTHELABO-A02200703639

PATIENT
  Age: 50 Year
  Sex: Female

DRUGS (6)
  1. DEROXAT [Concomitant]
     Indication: HEPATITIS C
     Dosage: UNK
     Route: 065
  2. COPEGUS [Suspect]
     Indication: HEPATITIS C
     Dosage: UNK
     Route: 048
     Dates: end: 20070928
  3. COPEGUS [Suspect]
     Dosage: UNK
     Route: 048
  4. STILNOX [Suspect]
     Indication: INSOMNIA
     Route: 048
     Dates: start: 20070801, end: 20070914
  5. PEGASYS [Suspect]
     Indication: HEPATITIS C
     Dosage: UNK
     Route: 058
     Dates: end: 20070930
  6. PEGASYS [Suspect]
     Dosage: UNK
     Route: 058

REACTIONS (3)
  - ERYTHEMA [None]
  - PERIVASCULAR DERMATITIS [None]
  - RASH PAPULAR [None]
